FAERS Safety Report 18953873 (Version 4)
Quarter: 2021Q4

REPORT INFORMATION
  Report Type: Report from Study
  Country: US (occurrence: US)
  Receive Date: 20210301
  Receipt Date: 20211111
  Transmission Date: 20220303
  Serious: Yes (Hospitalization)
  Sender: FDA-Public Use
  Company Number: US-ALXN-A202102730

PATIENT
  Age: 19 Year
  Sex: Female
  Weight: 74 kg

DRUGS (19)
  1. ECULIZUMAB [Suspect]
     Active Substance: ECULIZUMAB
     Indication: Myasthenia gravis
     Dosage: 180 ML, UNK
     Route: 042
     Dates: start: 20200305
  2. ECULIZUMAB [Suspect]
     Active Substance: ECULIZUMAB
     Dosage: 240 ML, UNK
     Route: 042
     Dates: start: 20210205
  3. ECULIZUMAB [Suspect]
     Active Substance: ECULIZUMAB
     Dosage: 240 ML, UNK
     Route: 042
     Dates: start: 20210304
  4. ACETAMINOPHEN [Concomitant]
     Active Substance: ACETAMINOPHEN
     Indication: Dysmenorrhoea
     Dosage: 650 MG, PRN
     Route: 048
     Dates: start: 20180315
  5. MYCOPHENOLIC ACID [Concomitant]
     Active Substance: MYCOPHENOLIC ACID
     Indication: Myasthenia gravis
     Dosage: 720 MG, BID
     Route: 048
     Dates: start: 20190125
  6. PRILOSEC                           /00661201/ [Concomitant]
     Indication: Gastrooesophageal reflux disease
     Dosage: 20 MG, EVERY 4-6 HOURS PRN
     Route: 048
     Dates: start: 20190423
  7. PRILOSEC                           /00661201/ [Concomitant]
     Indication: Eyelid disorder
  8. EMLA                               /00675501/ [Concomitant]
     Indication: Catheter management
     Dosage: 1 APPLICATION, PRN
     Route: 061
     Dates: start: 20190829, end: 20210319
  9. FERROUS SULFATE [Concomitant]
     Active Substance: FERROUS SULFATE
     Indication: Supplementation therapy
     Dosage: 325 MG, BID
     Route: 048
     Dates: start: 20200627
  10. PREDNISONE [Concomitant]
     Active Substance: PREDNISONE
     Indication: Myasthenia gravis
     Dosage: 10 MG, QD
     Route: 048
     Dates: end: 202012
  11. PREDNISONE [Concomitant]
     Active Substance: PREDNISONE
     Dosage: 5 MG, QD
     Route: 048
     Dates: start: 20201211, end: 20210219
  12. PREDNISONE [Concomitant]
     Active Substance: PREDNISONE
     Dosage: 10 MG, TID
     Route: 048
     Dates: start: 20210220, end: 20210220
  13. PREDNISONE [Concomitant]
     Active Substance: PREDNISONE
     Dosage: 10 MG, QD
     Route: 048
     Dates: start: 20210221, end: 20210221
  14. PREDNISONE [Concomitant]
     Active Substance: PREDNISONE
     Dosage: 5 MG, QD
     Route: 048
     Dates: start: 20210222
  15. MESTINON [Concomitant]
     Active Substance: PYRIDOSTIGMINE BROMIDE
     Indication: Myasthenia gravis
     Dosage: 180 MG, BID
     Route: 048
     Dates: start: 201901
  16. IBUPROFEN [Concomitant]
     Active Substance: IBUPROFEN
     Indication: Peritonsillar abscess
     Dosage: UNK
     Route: 065
     Dates: start: 20210215
  17. IBUPROFEN [Concomitant]
     Active Substance: IBUPROFEN
     Dosage: 400 MG, SINGLE
     Route: 048
     Dates: start: 20210219, end: 20210219
  18. CHOLECALCIFEROL [Concomitant]
     Active Substance: CHOLECALCIFEROL
     Indication: Product used for unknown indication
     Dosage: 1 DF, QD
     Route: 048
  19. ALBUTEROL SULFATE [Concomitant]
     Active Substance: ALBUTEROL SULFATE
     Indication: Product used for unknown indication
     Dosage: UNK
     Route: 055

REACTIONS (1)
  - Peritonsillar abscess [Recovered/Resolved]

NARRATIVE: CASE EVENT DATE: 20210219
